FAERS Safety Report 4467440-6 (Version None)
Quarter: 2004Q4

REPORT INFORMATION
  Report Type: 
  Country: None (occurrence: None)
  Receive Date: 20041006
  Receipt Date: 20040922
  Transmission Date: 20050328
  Serious: Yes (Disabling)
  Sender: FDA-Public Use
  Company Number: US-MERCK-0409USA01964

PATIENT
  Age: 47 Year
  Sex: Female

DRUGS (3)
  1. PREMARIN [Concomitant]
     Route: 065
  2. VIOXX [Suspect]
     Indication: ARTHRALGIA
     Route: 048
     Dates: start: 19991216, end: 19991201
  3. VIOXX [Suspect]
     Route: 048
     Dates: start: 19991216, end: 19991201

REACTIONS (1)
  - CARDIAC FAILURE CONGESTIVE [None]
